FAERS Safety Report 5005904-7 (Version None)
Quarter: 2006Q2

REPORT INFORMATION
  Report Type: 
  Country: None (occurrence: None)
  Receive Date: 20060518
  Receipt Date: 20031119
  Transmission Date: 20061013
  Serious: Yes (Life-Threatening, Other)
  Sender: FDA-Public Use
  Company Number: PHBS2003JP12967

PATIENT
  Age: 63 Year
  Sex: Male
  Weight: 56 kg

DRUGS (5)
  1. DIOVAN [Suspect]
     Indication: HYPERTENSION
     Dosage: 80 MG/DAY
     Route: 048
     Dates: start: 20030322, end: 20030411
  2. PIPERACILLIN [Suspect]
     Indication: INFECTION PROPHYLAXIS
     Dosage: 1 G/DAY
     Dates: start: 20030228, end: 20030312
  3. FAMOTIDINE [Suspect]
     Dosage: 20 MG/DAY
     Route: 048
     Dates: end: 20030405
  4. LOXOPROFEN SODIUM [Suspect]
     Dosage: 120 MG/DAY
     Route: 048
     Dates: end: 20030405
  5. NU-LOTAN [Suspect]
     Indication: HYPERTENSION
     Dosage: 25 MG/DAY
     Route: 048
     Dates: end: 20030322

REACTIONS (9)
  - ANAEMIA HAEMOLYTIC AUTOIMMUNE [None]
  - ARTERIOVENOUS SHUNT OPERATION [None]
  - BLOOD BILIRUBIN INCREASED [None]
  - BLOOD IMMUNOGLOBULIN G [None]
  - BLOOD LACTATE DEHYDROGENASE INCREASED [None]
  - HAEMATOCRIT DECREASED [None]
  - HAEMOGLOBIN DECREASED [None]
  - HAPTOGLOBIN DECREASED [None]
  - SHUNT OCCLUSION [None]
